FAERS Safety Report 4332252-0 (Version None)
Quarter: 2004Q1

REPORT INFORMATION
  Report Type: 
  Country: None (occurrence: None)
  Receive Date: 20040329
  Receipt Date: 20040317
  Transmission Date: 20041129
  Serious: Yes (Other)
  Sender: FDA-Public Use
  Company Number: 2004019174

PATIENT
  Age: 75 Year
  Sex: Female

DRUGS (5)
  1. NEURONTIN [Suspect]
     Indication: NEURALGIA
     Dosage: 1600 MG (DAILY)
  2. NEURONTIN [Suspect]
     Indication: NEURALGIA
     Dosage: 1600 MG (DAILY)
  3. CALCITONIN, SALMON (CALCITONIN, SALMON) [Concomitant]
  4. ALENDRONATE SODIUM [Concomitant]
  5. RISEDRONATE SODIUM (RISEDRONATE SODIUM) [Concomitant]

REACTIONS (4)
  - CONDITION AGGRAVATED [None]
  - HIP FRACTURE [None]
  - NEURALGIA [None]
  - POST PROCEDURAL COMPLICATION [None]
